FAERS Safety Report 20112757 (Version 1)
Quarter: 2021Q4

REPORT INFORMATION
  Report Type: Spontaneous
  Country: US (occurrence: US)
  Receive Date: 20211125
  Receipt Date: 20211125
  Transmission Date: 20220303
  Serious: No
  Sender: FDA-Public Use
  Company Number: US-PHARMING-PHAUS2021000610

PATIENT

DRUGS (12)
  1. RUCONEST [Suspect]
     Active Substance: HUMAN C1-ESTERASE INHIBITOR
     Indication: Hereditary angioedema
     Dosage: 4200 IU, PRN
     Route: 042
     Dates: start: 20200130
  2. PEPCID                             /00305201/ [Concomitant]
     Indication: Product used for unknown indication
  3. EPINEPHRINE [Concomitant]
     Active Substance: EPINEPHRINE
     Indication: Product used for unknown indication
  4. BONJESTA [Concomitant]
     Active Substance: DOXYLAMINE SUCCINATE\PYRIDOXINE HYDROCHLORIDE
     Indication: Product used for unknown indication
  5. ICATIBANT [Concomitant]
     Active Substance: ICATIBANT ACETATE
     Indication: Product used for unknown indication
  6. ASPIRIN                            /00002701/ [Concomitant]
     Indication: Product used for unknown indication
  7. ZYRTEC                             /00884302/ [Concomitant]
     Indication: Product used for unknown indication
  8. MULTIVITAMINS                      /00116001/ [Concomitant]
     Indication: Product used for unknown indication
  9. PROPRANOLOL [Concomitant]
     Active Substance: PROPRANOLOL HYDROCHLORIDE
     Indication: Product used for unknown indication
  10. VITAMIN C                          /00008001/ [Concomitant]
     Indication: Product used for unknown indication
  11. DESMOPRESSIN [Concomitant]
     Active Substance: DESMOPRESSIN
     Indication: Product used for unknown indication
  12. PHENERGAN                          /00033001/ [Concomitant]
     Indication: Product used for unknown indication

REACTIONS (4)
  - Product use in unapproved indication [Unknown]
  - Product physical consistency issue [Unknown]
  - Product solubility abnormal [Unknown]
  - Poor quality product administered [Unknown]
